FAERS Safety Report 5566372-X (Version None)
Quarter: 2007Q4

REPORT INFORMATION
  Report Type: 
  Country: None (occurrence: None)
  Receive Date: 20071219
  Receipt Date: 20071218
  Transmission Date: 20080405
  Serious: Yes (Other)
  Sender: FDA-Public Use
  Company Number: US-RB-008556-07

PATIENT
  Sex: Female

DRUGS (3)
  1. SUBOXONE [Suspect]
     Dosage: 8MG TAKEN THEN ANOTHER 4MG ON THE DAY OF INDUCTION.
     Route: 060
     Dates: start: 20071113, end: 20071113
  2. SUBOXONE [Suspect]
     Route: 060
     Dates: start: 20071114
  3. AZITHROMYCIN [Concomitant]
     Dosage: DOSE UNKNOWN
     Route: 048
     Dates: start: 20071101

REACTIONS (4)
  - DEHYDRATION [None]
  - DIZZINESS [None]
  - HYPOKALAEMIA [None]
  - LOSS OF CONSCIOUSNESS [None]
